FAERS Safety Report 22380746 (Version 8)
Quarter: 2025Q3

REPORT INFORMATION
  Report Type: Report from Study
  Country: CA (occurrence: CA)
  Receive Date: 20230529
  Receipt Date: 20250830
  Transmission Date: 20251020
  Serious: Yes (Death, Other)
  Sender: CELLTRION
  Company Number: CA-CELLTRION INC.-2020CA035288

PATIENT

DRUGS (54)
  1. RITUXIMAB [Suspect]
     Active Substance: RITUXIMAB
     Indication: Neuromyelitis optica spectrum disorder
     Route: 042
  2. RITUXIMAB [Suspect]
     Active Substance: RITUXIMAB
     Indication: Multiple sclerosis
     Dosage: 500 MILLIGRAM, 1 EVERY 3 MONTHS
     Route: 042
  3. RITUXIMAB [Suspect]
     Active Substance: RITUXIMAB
     Route: 042
  4. RITUXIMAB [Suspect]
     Active Substance: RITUXIMAB
     Route: 065
  5. RITUXIMAB [Suspect]
     Active Substance: RITUXIMAB
     Route: 042
  6. RITUXIMAB [Suspect]
     Active Substance: RITUXIMAB
     Route: 042
  7. RITUXIMAB [Suspect]
     Active Substance: RITUXIMAB
     Dosage: 500 MILLIGRAM, 1 EVERY 3 MONTHS
     Route: 042
  8. RITUXIMAB [Suspect]
     Active Substance: RITUXIMAB
     Dosage: 500 MILLIGRAM, 1 EVERY 3 MONTHS
     Route: 042
  9. RITUXIMAB [Suspect]
     Active Substance: RITUXIMAB
     Route: 065
  10. RITUXIMAB [Suspect]
     Active Substance: RITUXIMAB
     Route: 042
  11. RITUXIMAB [Suspect]
     Active Substance: RITUXIMAB
     Dosage: 500 MILLIGRAM, 1 EVERY 3 MONTHS
     Route: 042
  12. RITUXIMAB [Suspect]
     Active Substance: RITUXIMAB
     Dosage: 500 MILLIGRAM, 1 EVERY 3 MONTHS
     Route: 042
  13. RITUXIMAB [Suspect]
     Active Substance: RITUXIMAB
     Route: 042
  14. RITUXIMAB [Suspect]
     Active Substance: RITUXIMAB
     Dosage: 500 MILLIGRAM, 1 EVERY 3 MONTHS
     Route: 042
  15. AMLODIPINE [Suspect]
     Active Substance: AMLODIPINE BESYLATE
     Indication: Blood pressure increased
     Route: 065
  16. AMLODIPINE BESYLATE [Suspect]
     Active Substance: AMLODIPINE BESYLATE
     Indication: Blood pressure increased
     Route: 065
  17. AMLODIPINE BESYLATE [Suspect]
     Active Substance: AMLODIPINE BESYLATE
     Route: 065
  18. CYCLOSPORINE [Suspect]
     Active Substance: CYCLOSPORINE
     Indication: Haemoglobin decreased
     Route: 065
  19. CYCLOSPORINE [Suspect]
     Active Substance: CYCLOSPORINE
     Indication: Haemoglobin decreased
     Route: 065
  20. PREDNISONE [Suspect]
     Active Substance: PREDNISONE
     Indication: Product used for unknown indication
     Route: 065
  21. PREDNISONE [Suspect]
     Active Substance: PREDNISONE
     Indication: Product used for unknown indication
     Route: 065
  22. ACETAMINOPHEN [Concomitant]
     Active Substance: ACETAMINOPHEN
     Route: 048
  23. ACETAMINOPHEN [Concomitant]
     Active Substance: ACETAMINOPHEN
     Route: 048
  24. ACETAMINOPHEN [Concomitant]
     Active Substance: ACETAMINOPHEN
     Route: 048
  25. BILBERRY [VACCINIUM MYRTILLUS] [Concomitant]
     Route: 065
  26. BILBERRY [VACCINIUM MYRTILLUS] [Concomitant]
     Route: 065
  27. CALCIUM [Concomitant]
     Active Substance: CALCIUM
     Route: 065
  28. CALCIUM [Concomitant]
     Active Substance: CALCIUM
     Route: 065
  29. DIPHENHYDRAMINE [Concomitant]
     Active Substance: DIPHENHYDRAMINE
     Indication: Premedication
     Route: 048
  30. DIPHENHYDRAMINE [Concomitant]
     Active Substance: DIPHENHYDRAMINE
     Route: 048
  31. MAGNESIUM [Concomitant]
     Active Substance: MAGNESIUM
     Route: 065
  32. MAGNESIUM [Concomitant]
     Active Substance: MAGNESIUM
  33. MAGNESIUM [Concomitant]
     Active Substance: MAGNESIUM
     Route: 065
  34. METHYLPREDNISOLONE [Concomitant]
     Active Substance: METHYLPREDNISOLONE
     Indication: Premedication
     Route: 042
  35. METHYLPREDNISOLONE [Concomitant]
     Active Substance: METHYLPREDNISOLONE
     Route: 042
  36. DOCONEXENT\ICOSAPENT [Concomitant]
     Active Substance: DOCONEXENT\ICOSAPENT
     Route: 065
  37. DOCONEXENT\ICOSAPENT [Concomitant]
     Active Substance: DOCONEXENT\ICOSAPENT
     Route: 065
  38. DOCONEXENT\ICOSAPENT [Concomitant]
     Active Substance: DOCONEXENT\ICOSAPENT
  39. TRIAMCINOLONE ACETONIDE [Concomitant]
     Active Substance: TRIAMCINOLONE ACETONIDE
     Route: 065
  40. TRIAMCINOLONE ACETONIDE [Concomitant]
     Active Substance: TRIAMCINOLONE ACETONIDE
     Route: 065
  41. TRIAMCINOLONE ACETONIDE [Concomitant]
     Active Substance: TRIAMCINOLONE ACETONIDE
  42. RABEPRAZOLE [Concomitant]
     Active Substance: RABEPRAZOLE
     Route: 065
  43. RABEPRAZOLE [Concomitant]
     Active Substance: RABEPRAZOLE
     Route: 065
  44. RABEPRAZOLE [Concomitant]
     Active Substance: RABEPRAZOLE
  45. RANITIDINE [Concomitant]
     Active Substance: RANITIDINE
     Route: 065
  46. RANITIDINE [Concomitant]
     Active Substance: RANITIDINE
     Route: 065
  47. SYNTHROID [Concomitant]
     Active Substance: LEVOTHYROXINE SODIUM
     Route: 065
  48. SYNTHROID [Concomitant]
     Active Substance: LEVOTHYROXINE SODIUM
  49. SYNTHROID [Concomitant]
     Active Substance: LEVOTHYROXINE SODIUM
     Route: 065
  50. TRIAMCINOLONE ACETONIDE [Concomitant]
     Active Substance: TRIAMCINOLONE ACETONIDE
     Route: 065
  51. TRIAMCINOLONE ACETONIDE [Concomitant]
     Active Substance: TRIAMCINOLONE ACETONIDE
     Route: 065
  52. TYLENOL [Concomitant]
     Active Substance: ACETAMINOPHEN
     Route: 065
  53. TYLENOL [Concomitant]
     Active Substance: ACETAMINOPHEN
  54. TYLENOL [Concomitant]
     Active Substance: ACETAMINOPHEN
     Route: 065

REACTIONS (38)
  - Aphthous ulcer [Fatal]
  - Blood iron increased [Fatal]
  - Blood pressure systolic abnormal [Fatal]
  - Blood pressure systolic increased [Fatal]
  - Dyschromatopsia [Fatal]
  - Eastern Cooperative Oncology Group performance status abnormal [Fatal]
  - Metamorphopsia [Fatal]
  - Migraine with aura [Fatal]
  - Nerve compression [Fatal]
  - Pigmentation disorder [Fatal]
  - Polymers allergy [Fatal]
  - Skin mass [Fatal]
  - Vulvovaginal pruritus [Fatal]
  - Eye pain [Fatal]
  - Haemorrhoids [Fatal]
  - Optic neuritis [Fatal]
  - Weight increased [Fatal]
  - Blood pressure increased [Fatal]
  - Abdominal distension [Fatal]
  - Balance disorder [Fatal]
  - Blood pressure fluctuation [Fatal]
  - Constipation [Fatal]
  - Haemoglobin decreased [Fatal]
  - Heart rate increased [Fatal]
  - Joint swelling [Fatal]
  - Vision blurred [Fatal]
  - Abdominal pain upper [Fatal]
  - Chest pain [Fatal]
  - Fatigue [Fatal]
  - Headache [Fatal]
  - Migraine [Fatal]
  - Pain [Fatal]
  - Pruritus [Fatal]
  - Rash [Fatal]
  - Allergy to chemicals [Fatal]
  - Off label use [Fatal]
  - Weight decreased [Fatal]
  - Intentional product use issue [Unknown]
